FAERS Safety Report 11268892 (Version 4)
Quarter: 2016Q1

REPORT INFORMATION
  Report Type: Report from Study
  Country: GB (occurrence: GB)
  Receive Date: 20150714
  Receipt Date: 20160301
  Transmission Date: 20160525
  Serious: Yes (Other)
  Sender: FDA-Public Use
  Company Number: GB-ROCHE-1605583

PATIENT
  Sex: Male

DRUGS (3)
  1. ESBRIET [Suspect]
     Active Substance: PIRFENIDONE
     Indication: IDIOPATHIC PULMONARY FIBROSIS
     Route: 048
     Dates: start: 20150519, end: 201509
  2. ESBRIET [Suspect]
     Active Substance: PIRFENIDONE
     Route: 048
  3. ESBRIET [Suspect]
     Active Substance: PIRFENIDONE
     Route: 048

REACTIONS (9)
  - Somnolence [Unknown]
  - Lethargy [Unknown]
  - Hypertension [Unknown]
  - Sunburn [Unknown]
  - Fatigue [Recovered/Resolved]
  - Malaise [Unknown]
  - Dyspnoea [Unknown]
  - Gait disturbance [Unknown]
  - Rash [Unknown]
